FAERS Safety Report 20619393 (Version 2)
Quarter: 2022Q2

REPORT INFORMATION
  Report Type: Spontaneous
  Country: DE (occurrence: DE)
  Receive Date: 20220322
  Receipt Date: 20220429
  Transmission Date: 20220721
  Serious: Yes (Hospitalization, Other)
  Sender: FDA-Public Use
  Company Number: DE-KRKA-DE2022K02456SPO

PATIENT
  Age: 25 Month
  Sex: Male
  Weight: 11 kg

DRUGS (2)
  1. METFORMIN [Suspect]
     Active Substance: METFORMIN HYDROCHLORIDE
     Indication: Accidental exposure to product by child
     Dosage: 1 TO 3X850 MG, SINGLE DOSE
     Route: 048
     Dates: start: 20220303, end: 20220303
  2. CANDESARTAN CILEXETIL\HYDROCHLOROTHIAZIDE [Suspect]
     Active Substance: CANDESARTAN CILEXETIL\HYDROCHLOROTHIAZIDE
     Indication: Accidental exposure to product by child
     Dosage: 1 TO 3X16 MG/12.5 MG, SINGLE DOSE
     Route: 048
     Dates: start: 20220303, end: 20220303

REACTIONS (3)
  - Accidental exposure to product by child [Unknown]
  - Vomiting [Recovered/Resolved]
  - Nausea [Recovered/Resolved]

NARRATIVE: CASE EVENT DATE: 20220303
